FAERS Safety Report 25972401 (Version 1)
Quarter: 2025Q4

REPORT INFORMATION
  Report Type: Spontaneous
  Country: US (occurrence: US)
  Receive Date: 20251029
  Receipt Date: 20251029
  Transmission Date: 20260117
  Serious: Yes (Other)
  Sender: BAXTER
  Company Number: US-BAXTER-2025BAX022941

PATIENT
  Sex: Male

DRUGS (1)
  1. TRAVASOL [Suspect]
     Active Substance: ALANINE\ARGININE\GLYCINE\HISTIDINE\ISOLEUCINE\LEUCINE\LYSINE HYDROCHLORIDE\METHIONINE\PHENYLALANINE\
     Indication: Chronic kidney disease
     Dosage: 100G OF 10% TRAVASOL PER DAY X 3 DAYS,1ST BAG
     Route: 065

REACTIONS (2)
  - Shock haemorrhagic [Unknown]
  - Blood creatinine increased [Unknown]
